FAERS Safety Report 6655582-6 (Version None)
Quarter: 2010Q1

REPORT INFORMATION
  Report Type: 
  Country: None (occurrence: None)
  Receive Date: 20100326
  Receipt Date: 20100326
  Transmission Date: 20100710
  Serious: Yes (Hospitalization, Disabling)
  Sender: FDA-Public Use
  Company Number: None

PATIENT
  Age: 64 Year
  Sex: Male

DRUGS (1)
  1. FLUPHENAZINE [Suspect]
     Indication: SCHIZOAFFECTIVE DISORDER
     Dosage: 37.5 MG IM
     Route: 030
     Dates: start: 19931230, end: 20100210

REACTIONS (2)
  - GAIT DISTURBANCE [None]
  - PARKINSONISM [None]
